FAERS Safety Report 4340793-5 (Version None)
Quarter: 2004Q2

REPORT INFORMATION
  Report Type: 
  Country: None (occurrence: None)
  Receive Date: 20040419
  Receipt Date: 20030923
  Transmission Date: 20050107
  Serious: No
  Sender: FDA-Public Use
  Company Number: US-GLAXOSMITHKLINE-A0427034A

PATIENT
  Sex: Male

DRUGS (1)
  1. ESKALITH [Suspect]

REACTIONS (2)
  - FOOD ALLERGY [None]
  - NERVOUSNESS [None]
